FAERS Safety Report 26073914 (Version 2)
Quarter: 2025Q4

REPORT INFORMATION
  Report Type: Spontaneous
  Country: US (occurrence: US)
  Receive Date: 20251121
  Receipt Date: 20251217
  Transmission Date: 20260117
  Serious: Yes (Other)
  Sender: LUPIN
  Company Number: US-LUPIN PHARMACEUTICALS INC.-2025-10376

PATIENT
  Age: 41 Year
  Weight: 68.027 kg

DRUGS (1)
  1. DESVENLAFAXINE SUCCINATE [Suspect]
     Active Substance: DESVENLAFAXINE SUCCINATE
     Indication: Depression
     Dosage: 100 MILLIGRAM, QD (1 PILL ONCE A DAY)
     Route: 061

REACTIONS (22)
  - Appendicitis [Unknown]
  - Autoimmune disorder [Unknown]
  - Photosensitivity reaction [Unknown]
  - Vasculitis [Unknown]
  - Urticaria [Unknown]
  - Migraine [Unknown]
  - Visual impairment [Unknown]
  - Abdominal distension [Unknown]
  - Swelling [Unknown]
  - Fluid retention [Unknown]
  - Cushingoid [Unknown]
  - Rosacea [Unknown]
  - Dissociation [Unknown]
  - Inflammation [Unknown]
  - Antinuclear antibody positive [Unknown]
  - C-reactive protein [Unknown]
  - Hyperhidrosis [Unknown]
  - Brain fog [Unknown]
  - Fatigue [Unknown]
  - Amnesia [Unknown]
  - Arthralgia [Unknown]
  - Rash [Unknown]
